FAERS Safety Report 5355725-0 (Version None)
Quarter: 2007Q2

REPORT INFORMATION
  Report Type: 
  Country: None (occurrence: None)
  Receive Date: 20070613
  Receipt Date: 20070601
  Transmission Date: 20071010
  Serious: Yes (Life-Threatening)
  Sender: FDA-Public Use
  Company Number: JP-ROCHE-498229

PATIENT
  Age: 30 Year
  Sex: Female
  Weight: 57 kg

DRUGS (2)
  1. ROCEPHIN [Suspect]
     Indication: PYELONEPHRITIS ACUTE
     Dosage: TRADE NAME: ROCEPHIN 1G BAG.
     Route: 041
     Dates: start: 20070501, end: 20070501
  2. POTACOL-R [Concomitant]
     Route: 041
     Dates: start: 20070501, end: 20070501

REACTIONS (1)
  - ANAPHYLACTIC SHOCK [None]
